FAERS Safety Report 8598309-3 (Version None)
Quarter: 2012Q3

REPORT INFORMATION
  Report Type: 
  Country: None (occurrence: None)
  Receive Date: 20120816
  Receipt Date: 20120808
  Transmission Date: 20120928
  Serious: Yes (Other)
  Sender: FDA-Public Use
  Company Number: JP-ABBOTT-12P-087-0963480-00

PATIENT
  Age: 24 Year
  Sex: Male

DRUGS (10)
  1. LAMOTRIGINE [Suspect]
     Indication: INFANTILE SPASMS
     Route: 065
  2. VALPROIC ACID [Suspect]
     Indication: INFANTILE SPASMS
     Route: 065
  3. NITRAZEPAM [Concomitant]
     Indication: PRODUCT USED FOR UNKNOWN INDICATION
  4. CORTICOTROPIN [Concomitant]
     Indication: PRODUCT USED FOR UNKNOWN INDICATION
  5. LEVETIRACETAM [Suspect]
     Indication: INFANTILE SPASMS
     Route: 065
  6. ZONISAMIDE [Concomitant]
     Indication: PRODUCT USED FOR UNKNOWN INDICATION
  7. ETHOSUXIMIDE [Concomitant]
     Indication: PRODUCT USED FOR UNKNOWN INDICATION
  8. PHENYTOIN [Suspect]
     Indication: INFANTILE SPASMS
     Route: 065
  9. CARBAMAZEPINE [Suspect]
     Indication: INFANTILE SPASMS
     Route: 065
  10. VITAMIN B6 [Concomitant]
     Indication: PRODUCT USED FOR UNKNOWN INDICATION

REACTIONS (2)
  - DRUG INEFFECTIVE [None]
  - ATONIC SEIZURES [None]
